FAERS Safety Report 9987105 (Version 1)
Quarter: 2014Q1

REPORT INFORMATION
  Report Type: Report from Study
  Country: US (occurrence: US)
  Receive Date: 20140307
  Receipt Date: 20140307
  Transmission Date: 20141002
  Serious: No
  Sender: FDA-Public Use
  Company Number: US-ABBVIE-13P-163-1081684-00

PATIENT
  Age: 44 Year
  Sex: Female

DRUGS (6)
  1. HUMIRA [Suspect]
     Indication: COLITIS ULCERATIVE
     Dosage: FIRST LOADING DOSE 4 PENS
     Route: 058
     Dates: start: 20130425, end: 20130425
  2. HUMIRA [Suspect]
     Route: 058
  3. APRISO [Concomitant]
     Indication: COLITIS ULCERATIVE
  4. IRON [Concomitant]
     Indication: ANAEMIA
  5. IMITREX [Concomitant]
     Indication: COLITIS ULCERATIVE
  6. MULTIVITAMIN [Concomitant]
     Indication: COLITIS ULCERATIVE

REACTIONS (2)
  - Injection site haemorrhage [Recovered/Resolved]
  - Injection site pain [Recovered/Resolved]
